FAERS Safety Report 6509556-6 (Version None)
Quarter: 2009Q4

REPORT INFORMATION
  Report Type: 
  Country: None (occurrence: None)
  Receive Date: 20091222
  Receipt Date: 20091215
  Transmission Date: 20100525
  Serious: Yes (Hospitalization)
  Sender: FDA-Public Use
  Company Number: JP-BAYER-200913891BYL

PATIENT
  Age: 67 Year
  Sex: Male
  Weight: 59 kg

DRUGS (7)
  1. NEXAVAR [Suspect]
     Indication: HEPATIC NEOPLASM MALIGNANT
     Dosage: UNIT DOSE: 200 MG
     Route: 048
     Dates: start: 20090910, end: 20090923
  2. NEXAVAR [Suspect]
     Dosage: UNIT DOSE: 200 MG
     Route: 048
     Dates: start: 20090924, end: 20091008
  3. NEO-MINOPHAGEN C [Concomitant]
     Indication: HEPATIC FUNCTION ABNORMAL
     Route: 042
     Dates: start: 20091008
  4. URSO 250 [Concomitant]
     Indication: HEPATIC FUNCTION ABNORMAL
     Route: 048
     Dates: start: 20091008
  5. ADELAVIN-NO.9 [Concomitant]
     Indication: HEPATIC FUNCTION ABNORMAL
     Route: 042
     Dates: start: 20091008
  6. UREPEARL [Concomitant]
     Indication: PROPHYLAXIS
     Route: 062
     Dates: start: 20090904, end: 20091001
  7. DERMOVATE [Concomitant]
     Indication: PALMAR-PLANTAR ERYTHRODYSAESTHESIA SYNDROME
     Route: 062
     Dates: start: 20090924, end: 20091001

REACTIONS (2)
  - HEPATIC FUNCTION ABNORMAL [None]
  - PALMAR-PLANTAR ERYTHRODYSAESTHESIA SYNDROME [None]
